FAERS Safety Report 19902059 (Version 1)
Quarter: 2021Q3

REPORT INFORMATION
  Report Type: Report from Study
  Country: None (occurrence: US)
  Receive Date: 20210929
  Receipt Date: 20210929
  Transmission Date: 20211014
  Serious: Yes (Other)
  Sender: FDA-Public Use
  Company Number: US-ABBVIE-21K-163-4083784-00

PATIENT
  Sex: Female

DRUGS (2)
  1. MUCINEX [Suspect]
     Active Substance: GUAIFENESIN
     Indication: PRODUCT USED FOR UNKNOWN INDICATION
     Route: 065
     Dates: start: 2021
  2. RINVOQ [Suspect]
     Active Substance: UPADACITINIB
     Indication: RHEUMATOID ARTHRITIS
     Route: 048
     Dates: start: 202108

REACTIONS (7)
  - Paraesthesia [Unknown]
  - Erythema [Unknown]
  - Nausea [Recovered/Resolved]
  - Middle ear effusion [Unknown]
  - Hydrocephalus [Unknown]
  - Increased upper airway secretion [Unknown]
  - Rash macular [Unknown]

NARRATIVE: CASE EVENT DATE: 2021
